FAERS Safety Report 9496676 (Version 1)
Quarter: 2013Q3

REPORT INFORMATION
  Report Type: Spontaneous
  Country: JP (occurrence: JP)
  Receive Date: 20130904
  Receipt Date: 20130904
  Transmission Date: 20140515
  Serious: Yes (Other)
  Sender: FDA-Public Use
  Company Number: PHHY2013JP093988

PATIENT
  Age: 41 Year
  Sex: Male

DRUGS (6)
  1. CISPLATIN [Suspect]
  2. ETOPOSIDE [Suspect]
  3. PACLITAXEL [Suspect]
  4. IFOSFAMIDE [Suspect]
  5. IRINOTECAN [Suspect]
  6. NEDAPLATIN [Suspect]

REACTIONS (2)
  - Neurotoxicity [Recovered/Resolved]
  - Neuropathy peripheral [Recovered/Resolved]
